FAERS Safety Report 4628288-2 (Version None)
Quarter: 2005Q2

REPORT INFORMATION
  Report Type: 
  Country: None (occurrence: None)
  Receive Date: 20050404
  Receipt Date: 20050321
  Transmission Date: 20051028
  Serious: Yes (Other)
  Sender: FDA-Public Use
  Company Number: 2005044550

PATIENT
  Age: 33 Year
  Sex: Female
  Weight: 56.246 kg

DRUGS (2)
  1. DEPO-PROVERA [Suspect]
     Indication: ENDOMETRIOSIS
     Dosage: SEE IMAGE
     Route: 030
     Dates: start: 20010614, end: 20010614
  2. DEPO-PROVERA [Suspect]
     Indication: ENDOMETRIOSIS
     Dosage: SEE IMAGE
     Route: 030
     Dates: start: 20040506, end: 20040506

REACTIONS (13)
  - ABDOMINAL PAIN [None]
  - ANXIETY [None]
  - ASTHENIA [None]
  - BREAST TENDERNESS [None]
  - DIZZINESS [None]
  - FATIGUE [None]
  - HAEMORRHAGE [None]
  - HEADACHE [None]
  - INFECTIOUS MONONUCLEOSIS [None]
  - INSOMNIA [None]
  - NIGHT SWEATS [None]
  - PALPITATIONS [None]
  - PROGESTERONE DECREASED [None]
